FAERS Safety Report 9051352 (Version 2)
Quarter: 2013Q3

REPORT INFORMATION
  Report Type: Spontaneous
  Country: US (occurrence: US)
  Receive Date: 20130206
  Receipt Date: 20130717
  Transmission Date: 20140515
  Serious: Yes (Other)
  Sender: FDA-Public Use
  Company Number: US-009507513-1302USA000653

PATIENT
  Sex: Female

DRUGS (1)
  1. FOSAMAX [Suspect]
     Indication: OSTEOPOROSIS
     Dosage: UNK
     Route: 048
     Dates: start: 200710

REACTIONS (4)
  - Osteonecrosis of jaw [Not Recovered/Not Resolved]
  - Tooth extraction [Not Recovered/Not Resolved]
  - Dental operation [Not Recovered/Not Resolved]
  - Endodontic procedure [Unknown]
